FAERS Safety Report 13881903 (Version 9)
Quarter: 2018Q3

REPORT INFORMATION
  Report Type: Report from Study
  Country: AU (occurrence: AU)
  Receive Date: 20170818
  Receipt Date: 20180904
  Transmission Date: 20181010
  Serious: Yes (Hospitalization)
  Sender: FDA-Public Use
  Company Number: AU-ASTELLAS-2017US033054

PATIENT
  Age: 79 Year
  Sex: Male

DRUGS (11)
  1. ENZALUTAMIDE [Suspect]
     Active Substance: ENZALUTAMIDE
     Indication: PROSTATE CANCER
     Dosage: UNK UNK, ONCE DAILY
     Route: 048
     Dates: start: 20140827, end: 201708
  2. FISH OIL [Concomitant]
     Active Substance: FISH OIL
     Indication: GENERAL PHYSICAL CONDITION ABNORMAL
     Route: 048
  3. CALTRATE [Concomitant]
     Active Substance: CALCIUM CARBONATE
     Indication: GENERAL PHYSICAL CONDITION ABNORMAL
     Dosage: UNK, CYCLIC, 4 TIMES PER WEEK
     Route: 048
  4. LUCRIN [Concomitant]
     Active Substance: LEUPROLIDE ACETATE
     Indication: CANCER PAIN
  5. PANADOL [Concomitant]
     Active Substance: ACETAMINOPHEN
     Indication: SPONDYLITIS
     Route: 048
     Dates: start: 20150616
  6. MULTIVITAMIN                       /00097801/ [Concomitant]
     Active Substance: VITAMINS
     Indication: GENERAL PHYSICAL CONDITION ABNORMAL
     Dosage: UNK UNK, CYCLIC (4 TIMES PER WEEK)
     Route: 065
  7. LUCRIN [Concomitant]
     Active Substance: LEUPROLIDE ACETATE
     Indication: PROSTATE CANCER
     Dosage: 30 MG, 4 TIMES A MONTH (4QM), CYCLIC
     Route: 030
     Dates: start: 20140820
  8. CADUET [Concomitant]
     Active Substance: AMLODIPINE BESYLATE\ATORVASTATIN CALCIUM
     Indication: HYPERTENSION
  9. CARTIA                             /00002701/ [Concomitant]
     Active Substance: ASPIRIN
     Indication: THROMBOSIS PROPHYLAXIS
     Route: 048
     Dates: start: 2008
  10. ATACAND [Concomitant]
     Active Substance: CANDESARTAN CILEXETIL
     Indication: HYPERTENSION
     Route: 048
     Dates: start: 2005
  11. CADUET [Concomitant]
     Active Substance: AMLODIPINE BESYLATE\ATORVASTATIN CALCIUM
     Indication: HYPERCHOLESTEROLAEMIA
     Dosage: [AMLODIPINE BESILATE 10MG] /[ATORVASTATIN CALCIUM 10MG], ONCE DAILY
     Route: 048
     Dates: start: 2008

REACTIONS (1)
  - Cerebrovascular accident [Recovered/Resolved]

NARRATIVE: CASE EVENT DATE: 20170626
